FAERS Safety Report 7626813-0 (Version None)
Quarter: 2011Q3

REPORT INFORMATION
  Report Type: 
  Country: None (occurrence: None)
  Receive Date: 20110721
  Receipt Date: 20110719
  Transmission Date: 20111222
  Serious: No
  Sender: FDA-Public Use
  Company Number: US-BAYER-2011-062812

PATIENT
  Age: 48 Year
  Sex: Female
  Weight: 72.562 kg

DRUGS (4)
  1. BETASERON [Suspect]
     Dosage: 0.5 ML, QOD
     Route: 058
     Dates: start: 20110517
  2. BETASERON [Suspect]
     Dosage: 0.75 ML, QOD
     Route: 058
     Dates: start: 20110517
  3. BETASERON [Suspect]
     Indication: MULTIPLE SCLEROSIS
     Dosage: 0.25 ML, QOD
     Route: 058
     Dates: start: 20110517
  4. BETASERON [Suspect]
     Dosage: 1 ML, QOD
     Route: 058

REACTIONS (2)
  - DEPRESSED MOOD [None]
  - DEPRESSION [None]
